FAERS Safety Report 6227904-1 (Version None)
Quarter: 2009Q2

REPORT INFORMATION
  Report Type: 
  Country: None (occurrence: None)
  Receive Date: 20090612
  Receipt Date: 20090602
  Transmission Date: 20091009
  Serious: Yes (Hospitalization)
  Sender: FDA-Public Use
  Company Number: B0576935A

PATIENT
  Sex: Female

DRUGS (6)
  1. ALKERAN [Suspect]
     Indication: MANTLE CELL LYMPHOMA
     Dosage: 200MGM2 PER DAY
     Route: 042
     Dates: start: 20090328
  2. ETOPOSIDE [Suspect]
     Indication: MANTLE CELL LYMPHOMA
     Dosage: 300MGM2 PER DAY
     Route: 042
     Dates: start: 20090328
  3. BICNU [Suspect]
     Indication: MANTLE CELL LYMPHOMA
     Dosage: 200MGM2 PER DAY
     Route: 042
     Dates: start: 20090328
  4. ARACYTINE [Suspect]
     Indication: MANTLE CELL LYMPHOMA
     Dosage: 6000MGK PER DAY
     Route: 042
     Dates: start: 20090328
  5. RADIOTHERAPY [Concomitant]
     Indication: MANTLE CELL LYMPHOMA
  6. AUTOTRANSPLANTATION OF BONE MARROW [Concomitant]
     Indication: MANTLE CELL LYMPHOMA
     Dates: start: 20090401

REACTIONS (4)
  - BONE MARROW FAILURE [None]
  - MOUTH ULCERATION [None]
  - PYREXIA [None]
  - STOMATITIS [None]
